FAERS Safety Report 8275740-7 (Version None)
Quarter: 2012Q2

REPORT INFORMATION
  Report Type: 
  Country: None (occurrence: None)
  Receive Date: 20120410
  Receipt Date: 20120410
  Transmission Date: 20120825
  Serious: Yes (Hospitalization)
  Sender: FDA-Public Use
  Company Number: None

PATIENT
  Age: 67 Year
  Sex: Male
  Weight: 84.1 kg

DRUGS (2)
  1. ASPIRIN [Suspect]
     Dates: end: 20110912
  2. IBUPROFEN [Suspect]
     Indication: PAIN
     Dosage: 200 MG BID PO
     Route: 048
     Dates: start: 20110905, end: 20110912

REACTIONS (4)
  - GASTRIC HAEMORRHAGE [None]
  - OCCULT BLOOD POSITIVE [None]
  - MELAENA [None]
  - GASTROINTESTINAL HAEMORRHAGE [None]
